FAERS Safety Report 6839824-X (Version None)
Quarter: 2010Q3

REPORT INFORMATION
  Report Type: 
  Country: None (occurrence: None)
  Receive Date: 20100714
  Receipt Date: 20100701
  Transmission Date: 20110219
  Serious: Yes (Hospitalization, Other)
  Sender: FDA-Public Use
  Company Number: US-BAYER-200922017NA

PATIENT
  Age: 39 Year
  Sex: Female
  Weight: 98 kg

DRUGS (8)
  1. YAZ [Suspect]
     Indication: DYSFUNCTIONAL UTERINE BLEEDING
     Route: 048
     Dates: start: 20070412, end: 20070724
  2. SYNTHROID [Concomitant]
     Indication: HYPOTHYROIDISM
     Route: 048
  3. SYNTHROID [Concomitant]
     Route: 048
  4. VITAMIN C [Concomitant]
     Route: 048
  5. MULTI-VITAMIN [Concomitant]
     Route: 048
  6. IBUPROFEN [Concomitant]
     Dates: start: 20050101
  7. LEVOTHYROXINE SODIUM [Concomitant]
     Dates: start: 20060101
  8. ANTIBIOTICS [Concomitant]
     Dates: start: 20040101

REACTIONS (13)
  - ANXIETY [None]
  - CHEST PAIN [None]
  - DYSPNOEA [None]
  - FATIGUE [None]
  - FEAR [None]
  - HYPERHIDROSIS [None]
  - INJURY [None]
  - MENORRHAGIA [None]
  - METRORRHAGIA [None]
  - MUSCULOSKELETAL PAIN [None]
  - PAIN [None]
  - PULMONARY EMBOLISM [None]
  - THROMBOSIS [None]
